FAERS Safety Report 10381087 (Version 1)
Quarter: 2014Q1

REPORT INFORMATION
  Report Type: Spontaneous
  Country: US (occurrence: None)
  Receive Date: 20140306
  Receipt Date: 20140306
  Transmission Date: 20141002
  Serious: Yes (Hospitalization, Other)
  Sender: FDA-Public Use
  Company Number: 163-21880-13030189

PATIENT
  Age: 62 Year
  Sex: Male
  Weight: 77.93 kg

DRUGS (3)
  1. REVLIMID (LENALIDOMIDE) (25 MILLIGRAM, CAPSULES) [Suspect]
     Indication: PLASMA CELL MYELOMA
     Route: 048
     Dates: start: 200905, end: 20091210
  2. DEXAMETHASONE (DEXAMETHASONE0 [Concomitant]
  3. AMINOCAPROIC ACID (AMINOCAPROIC ACID) [Concomitant]

REACTIONS (2)
  - Epistaxis [None]
  - Plasma cell myeloma [None]
